FAERS Safety Report 22002978 (Version 2)
Quarter: 2025Q3

REPORT INFORMATION
  Report Type: Spontaneous
  Country: EU (occurrence: EU)
  Receive Date: 20230217
  Receipt Date: 20250708
  Transmission Date: 20251021
  Serious: Yes (Hospitalization, Other)
  Sender: AUROBINDO
  Company Number: EU-PBIPT-2023-0003

PATIENT
  Age: 19 Year
  Sex: Male

DRUGS (10)
  1. TRANEXAMIC ACID [Suspect]
     Active Substance: TRANEXAMIC ACID
     Indication: Product used for unknown indication
     Route: 065
  2. DIAZEPAM [Suspect]
     Active Substance: DIAZEPAM
     Indication: Tonic clonic movements
     Route: 065
  3. LEVETIRACETAM [Suspect]
     Active Substance: LEVETIRACETAM
     Indication: Tonic clonic movements
     Route: 065
  4. LEVETIRACETAM [Suspect]
     Active Substance: LEVETIRACETAM
     Route: 065
  5. PROPOFOL [Concomitant]
     Active Substance: PROPOFOL
     Indication: Sedation
     Route: 065
  6. MIDAZOLAM [Concomitant]
     Active Substance: MIDAZOLAM
     Indication: Sedation
     Route: 065
  7. CLEMASTINE [Concomitant]
     Active Substance: CLEMASTINE
     Indication: Erythema
     Route: 065
  8. HYDROCORTISONE [Concomitant]
     Active Substance: HYDROCORTISONE
     Indication: Erythema
     Route: 065
  9. ROCURONIUM [Concomitant]
     Active Substance: ROCURONIUM BROMIDE
     Indication: Tonic clonic movements
     Route: 065
  10. VALPROATE SODIUM [Concomitant]
     Active Substance: VALPROATE SODIUM
     Indication: Tonic clonic movements
     Route: 065

REACTIONS (10)
  - Tonic clonic movements [Recovered/Resolved]
  - Psychomotor retardation [Recovered/Resolved]
  - Supraventricular tachycardia [Recovered/Resolved]
  - Rash pruritic [Recovered/Resolved]
  - Hypertension [Recovered/Resolved]
  - Pruritus genital [Recovered/Resolved]
  - Erythema [Recovered/Resolved]
  - Perineal pain [Recovered/Resolved]
  - Accidental exposure to product [Recovered/Resolved]
  - Drug ineffective [Unknown]
